FAERS Safety Report 7058293-0 (Version None)
Quarter: 2010Q4

REPORT INFORMATION
  Report Type: 
  Country: None (occurrence: None)
  Receive Date: 20101022
  Receipt Date: 20101011
  Transmission Date: 20110411
  Serious: Yes (Other)
  Sender: FDA-Public Use
  Company Number: KR-ELI_LILLY_AND_COMPANY-KR201010002461

PATIENT
  Age: 22 Year
  Sex: Male

DRUGS (4)
  1. CYMBALTA [Suspect]
     Indication: MAJOR DEPRESSION
     Dosage: 30 MG, UNK
  2. CYMBALTA [Suspect]
     Dosage: 60 MG, UNK
  3. MIRTAZAPINE [Concomitant]
     Indication: MAJOR DEPRESSION
     Dosage: 15 MG, UNK
  4. MIRTAZAPINE [Concomitant]
     Dosage: 45 MG, UNK

REACTIONS (1)
  - JAUNDICE CHOLESTATIC [None]
